FAERS Safety Report 10526274 (Version 1)
Quarter: 2014Q4

REPORT INFORMATION
  Report Type: Report from Study
  Country: US (occurrence: US)
  Receive Date: 20141018
  Receipt Date: 20141018
  Transmission Date: 20150528
  Serious: Yes (Hospitalization, Other)
  Sender: FDA-Public Use
  Company Number: US-ABBVIE-14K-163-1294440-00

PATIENT
  Sex: Male
  Weight: 93 kg

DRUGS (5)
  1. FLAGYL [Concomitant]
     Active Substance: METRONIDAZOLE\METRONIDAZOLE HYDROCHLORIDE
     Indication: CROHN^S DISEASE
     Dosage: HAS BEEN TAKING ON AND OFF FOR YEARS
  2. HUMIRA [Suspect]
     Active Substance: ADALIMUMAB
     Indication: CROHN^S DISEASE
     Route: 058
     Dates: start: 2011, end: 201401
  3. HUMIRA [Suspect]
     Active Substance: ADALIMUMAB
     Route: 058
     Dates: start: 2014, end: 201407
  4. HYDROCODONE/APAP [Concomitant]
     Active Substance: ACETAMINOPHEN\HYDROCODONE
     Indication: BACK PAIN
  5. NEURONTIN [Concomitant]
     Active Substance: GABAPENTIN
     Indication: NEUROPATHY PERIPHERAL

REACTIONS (7)
  - Intervertebral disc protrusion [Recovered/Resolved]
  - Medical device complication [Not Recovered/Not Resolved]
  - Bronchitis [Recovered/Resolved]
  - Procedural complication [Not Recovered/Not Resolved]
  - Migraine [Recovered/Resolved]
  - Bronchial secretion retention [Recovered/Resolved]
  - Crohn^s disease [Not Recovered/Not Resolved]

NARRATIVE: CASE EVENT DATE: 2011
